FAERS Safety Report 5342018-0 (Version None)
Quarter: 2007Q2

REPORT INFORMATION
  Report Type: 
  Country: None (occurrence: None)
  Receive Date: 20070530
  Receipt Date: 20070530
  Transmission Date: 20071010
  Serious: No
  Sender: FDA-Public Use
  Company Number: None

PATIENT
  Sex: Female
  Weight: 61.2356 kg

DRUGS (1)
  1. FLEET PHOSPHO-SODA 2 BOTTLES - 1.5 FLU. OUNCES C.B. FLEET COMPANY, INC [Suspect]
     Indication: COLONOSCOPY
     Dosage: 1.5 FL. OZ. TWICE IN 12 HOURS PO
     Route: 048
     Dates: start: 20060822, end: 20060823

REACTIONS (11)
  - ABDOMINAL PAIN UPPER [None]
  - ANAEMIA [None]
  - ANXIETY [None]
  - DEPRESSION [None]
  - DIALYSIS [None]
  - HAEMORRHAGE [None]
  - INFLUENZA [None]
  - NAUSEA [None]
  - RENAL FAILURE [None]
  - TREATMENT NONCOMPLIANCE [None]
  - VOMITING [None]
